FAERS Safety Report 19914392 (Version 12)
Quarter: 2023Q4

REPORT INFORMATION
  Report Type: Report from Study
  Country: DE (occurrence: DE)
  Receive Date: 20211004
  Receipt Date: 20231205
  Transmission Date: 20240109
  Serious: Yes (Other)
  Sender: FDA-Public Use
  Company Number: DE-002147023-NVSC2021DE121126

PATIENT
  Sex: Female
  Weight: 98 kg

DRUGS (9)
  1. LETROZOLE [Suspect]
     Active Substance: LETROZOLE
     Indication: Breast cancer metastatic
     Dosage: 2.5 MILLIGRAM, QD
     Route: 048
     Dates: start: 20190605
  2. KISQALI [Suspect]
     Active Substance: RIBOCICLIB
     Indication: Breast cancer metastatic
     Dosage: 600MG,QD(SCHEMA 21 DAYS INTAKE,THAN 7 DAY PAUSE)
     Route: 048
     Dates: start: 20190605, end: 20200407
  3. KISQALI [Suspect]
     Active Substance: RIBOCICLIB
     Dosage: 600 MG,QD(SCHEMA 21 DAYS INTAKE,THAN 7 DAY PAUSE)
     Route: 048
     Dates: start: 20200415, end: 20211026
  4. KISQALI [Suspect]
     Active Substance: RIBOCICLIB
     Dosage: 600MG,QD(SCHEMA 21 DAYS INTAKE,THAN 7 DAY PAUS
     Route: 048
     Dates: start: 20211102, end: 20211227
  5. KISQALI [Suspect]
     Active Substance: RIBOCICLIB
     Dosage: 600MG,QD(SCHEMA 21 DAYS INTAKE,THAN 7 DAY PAUSE)
     Route: 048
     Dates: start: 20211229, end: 20221227
  6. KISQALI [Suspect]
     Active Substance: RIBOCICLIB
     Dosage: 600MG,QD(SCHEMA 21 DAYS IN
     Route: 048
     Dates: start: 20230208, end: 20230725
  7. KISQALI [Suspect]
     Active Substance: RIBOCICLIB
     Dosage: 600MG,QD(SCHEMA 21 DAYS
     Route: 048
     Dates: start: 20230104, end: 20230131
  8. KISQALI [Suspect]
     Active Substance: RIBOCICLIB
     Dosage: 600MG,QD(SCHEMA 21 DAYS INTAKE, THAN 7 DAYS PAUSE)
     Route: 048
     Dates: start: 20230802, end: 20231017
  9. KISQALI [Suspect]
     Active Substance: RIBOCICLIB
     Dosage: 600MG,QD(SCHEMA 21 DAYS INTAKE, THAN 7 DAYS PAUSE)
     Route: 048
     Dates: start: 20231102

REACTIONS (1)
  - Hypokalaemia [Not Recovered/Not Resolved]

NARRATIVE: CASE EVENT DATE: 20210511
